FAERS Safety Report 23953176 (Version 1)
Quarter: 2024Q2

REPORT INFORMATION
  Report Type: Spontaneous
  Country: US (occurrence: US)
  Receive Date: 20240608
  Receipt Date: 20240608
  Transmission Date: 20240716
  Serious: No
  Sender: FDA-Public Use
  Company Number: US-AMGEN-USASP2024111644

PATIENT
  Age: 44 Year
  Sex: Female
  Weight: 176.4 kg

DRUGS (7)
  1. TEPEZZA [Suspect]
     Active Substance: TEPROTUMUMAB-TRBW
     Indication: Toxic goitre
     Dosage: 1600 MILLIGRAM, Q3WK (FIRST INFUSION)
     Route: 042
     Dates: start: 20240423
  2. CLINDAMYCIN [Concomitant]
     Active Substance: CLINDAMYCIN
  3. BENZOYL PEROXIDE [Concomitant]
     Active Substance: BENZOYL PEROXIDE
     Dosage: 10 PERCENT
  4. TRETINOIN [Concomitant]
     Active Substance: TRETINOIN
     Dosage: 0.05 UNK
  5. METHIMAZOLE [Concomitant]
     Active Substance: METHIMAZOLE
     Dosage: 5 MILLIGRAM
  6. VITAMIN D3 [Concomitant]
     Active Substance: CHOLECALCIFEROL
     Dosage: 1250 MICROGRAM
  7. IRON [Concomitant]
     Active Substance: IRON

REACTIONS (2)
  - Muscle spasms [Recovered/Resolved]
  - Off label use [Unknown]

NARRATIVE: CASE EVENT DATE: 20240101
